FAERS Safety Report 24184583 (Version 2)
Quarter: 2024Q3

REPORT INFORMATION
  Report Type: Report from Study
  Country: US (occurrence: US)
  Receive Date: 20240807
  Receipt Date: 20240828
  Transmission Date: 20241017
  Serious: Yes (Death)
  Sender: BAYER
  Company Number: US-BAYER-2024A113952

PATIENT
  Age: 81 Year
  Sex: Female

DRUGS (2)
  1. ADEMPAS [Suspect]
     Active Substance: RIOCIGUAT
     Indication: Pulmonary hypertension
     Dosage: UNK
  2. ADEMPAS [Suspect]
     Active Substance: RIOCIGUAT
     Indication: Pulmonary hypertension
     Dosage: 2 MG, TID
     Route: 048
     Dates: start: 202010

REACTIONS (2)
  - Cor pulmonale [Fatal]
  - Localised infection [Fatal]

NARRATIVE: CASE EVENT DATE: 20240802
